FAERS Safety Report 19472109 (Version 1)
Quarter: 2021Q2

REPORT INFORMATION
  Report Type: Spontaneous
  Country: CA (occurrence: CA)
  Receive Date: 20210629
  Receipt Date: 20210629
  Transmission Date: 20210717
  Serious: Yes (Hospitalization, Other)
  Sender: FDA-Public Use
  Company Number: CA-COVIS PHARMA GMBH-2021COV19110

PATIENT
  Age: 81 Year
  Sex: Female

DRUGS (12)
  1. ONBREZ [Suspect]
     Active Substance: INDACATEROL
     Indication: PRODUCT USED FOR UNKNOWN INDICATION
     Dosage: BREEZHALER CAPSULE CONTAINING FREE?FLOWING POWDER FOR ORAL INHALATION? 1 DF DAILY
     Route: 065
  2. BUDESONIDE. [Suspect]
     Active Substance: BUDESONIDE
     Indication: PRODUCT USED FOR UNKNOWN INDICATION
     Route: 055
  3. VANCOMYCIN [Suspect]
     Active Substance: VANCOMYCIN
     Indication: PRODUCT USED FOR UNKNOWN INDICATION
     Route: 065
  4. ALVESCO [Suspect]
     Active Substance: CICLESONIDE
     Indication: PRODUCT USED FOR UNKNOWN INDICATION
     Route: 065
  5. SALBUTAMOL SULFATE [Suspect]
     Active Substance: ALBUTEROL SULFATE
     Dosage: 100.0MG UNKNOWN
     Route: 065
  6. TYLENOL [Suspect]
     Active Substance: ACETAMINOPHEN
     Indication: PRODUCT USED FOR UNKNOWN INDICATION
     Route: 065
  7. AZTREONAM. [Suspect]
     Active Substance: AZTREONAM
     Indication: PRODUCT USED FOR UNKNOWN INDICATION
     Route: 065
  8. VENTOLIN HFA [Suspect]
     Active Substance: ALBUTEROL SULFATE
     Indication: PRODUCT USED FOR UNKNOWN INDICATION
     Route: 065
  9. NUCALA [Suspect]
     Active Substance: MEPOLIZUMAB
     Indication: PRODUCT USED FOR UNKNOWN INDICATION
     Route: 042
     Dates: start: 20200706
  10. PULMOZYME [Suspect]
     Active Substance: DORNASE ALFA
     Indication: PRODUCT USED FOR UNKNOWN INDICATION
     Route: 055
  11. QVAR [Suspect]
     Active Substance: BECLOMETHASONE DIPROPIONATE
     Indication: PRODUCT USED FOR UNKNOWN INDICATION
     Route: 055
  12. SALBUTAMOL SULFATE [Suspect]
     Active Substance: ALBUTEROL SULFATE
     Indication: PRODUCT USED FOR UNKNOWN INDICATION
     Dosage: 100.0MG UNKNOWN
     Route: 065

REACTIONS (33)
  - Drug hypersensitivity [Unknown]
  - Bronchospasm [Unknown]
  - Rib fracture [Unknown]
  - Scoliosis [Unknown]
  - Hospitalisation [Unknown]
  - Blood pressure increased [Unknown]
  - Superinfection [Unknown]
  - Bronchial secretion retention [Unknown]
  - Heart rate increased [Unknown]
  - Sinus operation [Unknown]
  - Treatment noncompliance [Unknown]
  - Asthma [Unknown]
  - Dyspnoea [Unknown]
  - Loss of personal independence in daily activities [Unknown]
  - Wheezing [Unknown]
  - Adverse drug reaction [Unknown]
  - Aggression [Unknown]
  - General physical health deterioration [Unknown]
  - Myalgia [Unknown]
  - Anxiety [Unknown]
  - Atrial fibrillation [Unknown]
  - Bacterial disease carrier [Unknown]
  - Sleep disorder due to a general medical condition [Unknown]
  - Illness [Unknown]
  - Palpitations [Unknown]
  - Drug intolerance [Unknown]
  - Fall [Unknown]
  - Eosinophilia [Unknown]
  - Impaired quality of life [Unknown]
  - Atelectasis [Unknown]
  - Nonspecific reaction [Unknown]
  - Pain [Unknown]
  - Therapeutic product effect incomplete [Unknown]
